FAERS Safety Report 7380034-8 (Version None)
Quarter: 2011Q1

REPORT INFORMATION
  Report Type: 
  Country: None (occurrence: None)
  Receive Date: 20110329
  Receipt Date: 20110316
  Transmission Date: 20110831
  Serious: Yes (Other)
  Sender: FDA-Public Use
  Company Number: JP-BRISTOL-MYERS SQUIBB COMPANY-15599996

PATIENT
  Age: 85 Year
  Sex: Male

DRUGS (3)
  1. METGLUCO [Suspect]
  2. MELBIN [Suspect]
     Indication: TYPE 2 DIABETES MELLITUS
     Route: 048
  3. AMARYL [Suspect]
     Indication: TYPE 2 DIABETES MELLITUS
     Route: 048

REACTIONS (4)
  - HYPOGLYCAEMIA [None]
  - DYSARTHRIA [None]
  - HEMIPLEGIA [None]
  - DECREASED APPETITE [None]
